FAERS Safety Report 5463262-8 (Version None)
Quarter: 2007Q2

REPORT INFORMATION
  Report Type: 
  Country: None (occurrence: None)
  Receive Date: 20070221
  Receipt Date: 20061106
  Transmission Date: 20071010
  Serious: Yes (Hospitalization, Other)
  Sender: FDA-Public Use
  Company Number: 2006BH014267

PATIENT
  Age: 20 Year
  Sex: Female
  Weight: 57 kg

DRUGS (3)
  1. GAMMAGARD LIQUID [Suspect]
     Indication: EWING'S SARCOMA
     Dosage: 30 GM; EVERY 4 WK; IV
     Route: 042
     Dates: start: 20060929
  2. TYLENOL (CAPLET) [Concomitant]
  3. BENADRYL [Concomitant]

REACTIONS (1)
  - HEADACHE [None]
